FAERS Safety Report 9808089 (Version 1)
Quarter: 2014Q1

REPORT INFORMATION
  Report Type: Spontaneous
  Country: BR (occurrence: BR)
  Receive Date: 20140110
  Receipt Date: 20140110
  Transmission Date: 20141002
  Serious: Yes (Other)
  Sender: FDA-Public Use
  Company Number: BR-SA-2014SA000817

PATIENT
  Age: 74 Year
  Sex: Male
  Weight: 70 kg

DRUGS (12)
  1. LANTUS [Suspect]
     Indication: TYPE 1 DIABETES MELLITUS
     Dosage: DOSE: 7 IU IN THE MORNING AND 35 IU AT NIGHT?START DATE: ABOUT 4 YEARS AGO
     Route: 058
  2. APIDRA SOLOSTAR [Suspect]
     Indication: TYPE 1 DIABETES MELLITUS
     Route: 058
  3. SOLOSTAR [Concomitant]
     Indication: DEVICE THERAPY
     Route: 058
  4. CLIKSTAR [Concomitant]
     Indication: DEVICE THERAPY
     Dosage: START DATE: ABOUT 4 YEARS AGO
     Route: 058
  5. OMEGA 3 [Concomitant]
     Indication: ANTIOXIDANT THERAPY
     Dosage: START DATE: APPROXIMATELY 2 YEARS AGO
     Route: 048
  6. VITAMIN C [Concomitant]
     Indication: PROPHYLAXIS
     Dosage: START DATE:SINCE THE START OF DIABETES
     Route: 048
  7. LIPLESS [Concomitant]
     Indication: ARTERIAL THROMBOSIS
     Dosage: START DATE: MANY YEARS AGO
     Route: 048
  8. PRIMIDONE [Concomitant]
     Indication: TREMOR
     Dosage: START DATE: APPROXIMATELY 2 YEARS AGO?DOSE: HALF TABLET DAILY
     Route: 048
  9. RASILEZ [Concomitant]
     Indication: BLOOD PRESSURE
     Dosage: START DATE: APPROXIMATELY 1 YEAR AGO
     Route: 048
  10. LYRICA [Concomitant]
     Indication: NEUROPATHY PERIPHERAL
     Dosage: START DATE: APPROXIMATELY 4 YEARS AGO
  11. LASIX [Concomitant]
     Indication: BLOOD PRESSURE
     Dosage: START DATE: APPROXIMATELY 5 YEARS AGO
     Route: 048
  12. ALL OTHER THERAPEUTIC PRODUCTS [Concomitant]
     Indication: NUTRITIONAL SUPPLEMENTATION
     Dosage: START DATE: APPROXIMATELY 10 YEARS AGO
     Route: 048

REACTIONS (4)
  - Eye haemorrhage [Not Recovered/Not Resolved]
  - Visual impairment [Not Recovered/Not Resolved]
  - Vitreous floaters [Not Recovered/Not Resolved]
  - Off label use [Unknown]
